FAERS Safety Report 9751817 (Version 1)
Quarter: 2013Q4

REPORT INFORMATION
  Report Type: Report from Study
  Country: GR (occurrence: GR)
  Receive Date: 20131213
  Receipt Date: 20131213
  Transmission Date: 20140711
  Serious: Yes (Other)
  Sender: FDA-Public Use
  Company Number: GR-ROCHE-1313385

PATIENT
  Sex: 0

DRUGS (1)
  1. BEVACIZUMAB [Suspect]
     Indication: GLAUCOMA
     Route: 050

REACTIONS (5)
  - Hypotonia [Unknown]
  - Intraocular pressure increased [Unknown]
  - Hyphaema [Unknown]
  - Cataract [Unknown]
  - Off label use [Unknown]
